FAERS Safety Report 12449535 (Version 1)
Quarter: 2016Q2

REPORT INFORMATION
  Report Type: Report from Study
  Country: US (occurrence: US)
  Receive Date: 20160609
  Receipt Date: 20160609
  Transmission Date: 20160815
  Serious: Yes (Other)
  Sender: FDA-Public Use
  Company Number: US-AMGEN-USASL2016071813

PATIENT
  Age: 55 Year
  Sex: Male

DRUGS (1)
  1. ENBREL [Suspect]
     Active Substance: ETANERCEPT
     Indication: RHEUMATOID ARTHRITIS
     Dosage: 50 MG, UNK
     Route: 065
     Dates: start: 200201

REACTIONS (9)
  - Nerve injury [Unknown]
  - Insomnia [Unknown]
  - Neck injury [Unknown]
  - Monoplegia [Unknown]
  - Pain [Unknown]
  - Discomfort [Unknown]
  - Haemorrhage [Unknown]
  - Fall [Unknown]
  - Accident at work [Unknown]

NARRATIVE: CASE EVENT DATE: 2010
